FAERS Safety Report 9059631 (Version 1)
Quarter: 2013Q1

REPORT INFORMATION
  Report Type: Report from Study
  Country: JP (occurrence: JP)
  Receive Date: 20130212
  Receipt Date: 20130212
  Transmission Date: 20140127
  Serious: Yes (Hospitalization)
  Sender: FDA-Public Use
  Company Number: JP-009507513-2012SP036757

PATIENT
  Age: 68 Year
  Sex: Female
  Weight: 44 kg

DRUGS (17)
  1. PEGINTRON [Suspect]
     Dosage: 1.5 ?G/KG, QW
     Route: 058
     Dates: start: 20120404, end: 20120419
  2. PEGINTRON [Suspect]
     Dosage: 60 MICROGRAM, UNK
     Route: 058
     Dates: start: 20120425, end: 20120508
  3. REBETOL [Suspect]
     Indication: CHRONIC HEPATITIS C
     Dosage: 400 MG, QD
     Route: 048
     Dates: start: 20120404, end: 20120417
  4. REBETOL [Suspect]
     Dosage: 200 MG, QD
     Route: 048
     Dates: start: 20120418, end: 20120419
  5. REBETOL [Suspect]
     Dosage: 400 UNK, UNK
     Route: 048
     Dates: start: 20120425, end: 20120509
  6. REBETOL [Suspect]
     Dosage: 200 UNK, UNK
     Route: 048
     Dates: start: 20120510, end: 20120524
  7. TELAVIC [Suspect]
     Indication: CHRONIC HEPATITIS C
     Dosage: 1500 MG, QD
     Route: 048
     Dates: start: 20120404, end: 20120419
  8. TELAVIC [Suspect]
     Dosage: 1500 MG, QD
     Route: 048
     Dates: start: 20120422, end: 20120508
  9. TELAVIC [Suspect]
     Dosage: UNK
  10. NEO-MINOPHAGEN C [Concomitant]
     Indication: CHRONIC HEPATITIS C
     Dosage: DOSE:60CC PER DAY
     Route: 042
     Dates: start: 20120126
  11. DOGMATYL [Concomitant]
     Indication: GASTRITIS
     Dosage: 3 DF, QD
     Route: 048
     Dates: start: 20120425, end: 20120524
  12. BONALON [Concomitant]
     Indication: OSTEOPOROSIS
     Dosage: 35 MG, QD
     Route: 048
     Dates: start: 20120411, end: 20120524
  13. BONALON [Concomitant]
     Dosage: UNK
  14. SELBEX [Concomitant]
     Indication: GASTRITIS
     Dosage: 3 DF, QD
     Route: 048
  15. ICROL [Concomitant]
     Indication: GASTRITIS
     Dosage: 200 MG, QD
  16. PRIMPERAN [Concomitant]
     Indication: GASTRITIS
     Dosage: 15 MG, QD
     Route: 048
     Dates: start: 20120406
  17. BUCILLAMINE [Concomitant]
     Indication: RHEUMATIC DISORDER
     Dosage: 200 MG, QD

REACTIONS (1)
  - Restless legs syndrome [Recovered/Resolved]
